FAERS Safety Report 6168531-4 (Version None)
Quarter: 2009Q2

REPORT INFORMATION
  Report Type: 
  Country: None (occurrence: None)
  Receive Date: 20090427
  Receipt Date: 20090421
  Transmission Date: 20091009
  Serious: Yes (Hospitalization)
  Sender: FDA-Public Use
  Company Number: B0570930A

PATIENT
  Sex: Female

DRUGS (6)
  1. MALARONE [Suspect]
     Indication: MALARIA PROPHYLAXIS
     Dosage: 1TAB PER DAY
     Route: 048
     Dates: start: 20090201
  2. TOPIRAMATE [Concomitant]
  3. AMITRIPTYLINE [Concomitant]
     Dosage: 10MG PER DAY
  4. CANDESARTAN [Concomitant]
     Dosage: 32MG PER DAY
  5. PROPRANOLOL [Concomitant]
     Dosage: 80MG PER DAY
  6. RABEPRAZOLE SODIUM [Concomitant]
     Dosage: 10MG PER DAY

REACTIONS (2)
  - ADVERSE EVENT [None]
  - PRODUCT QUALITY ISSUE [None]
